FAERS Safety Report 10776629 (Version 1)
Quarter: 2015Q1

REPORT INFORMATION
  Report Type: Spontaneous
  Country: US (occurrence: None)
  Receive Date: 20150205
  Receipt Date: 20150205
  Transmission Date: 20150721
  Serious: Yes (Life-Threatening)
  Sender: FDA-Public Use
  Company Number: None

PATIENT
  Age: 52 Year
  Sex: Female
  Weight: 58.97 kg

DRUGS (1)
  1. TYLENOL [Suspect]
     Active Substance: ACETAMINOPHEN
     Indication: MIGRAINE
     Dates: start: 20150202, end: 20150202

REACTIONS (5)
  - Swelling [None]
  - Dyspnoea [None]
  - Sinus disorder [None]
  - Asthma [None]
  - Oxygen saturation decreased [None]

NARRATIVE: CASE EVENT DATE: 20150202
